FAERS Safety Report 5888305-9 (Version None)
Quarter: 2008Q3

REPORT INFORMATION
  Report Type: 
  Country: None (occurrence: None)
  Receive Date: 20080916
  Receipt Date: 20080916
  Transmission Date: 20090109
  Serious: Yes (Hospitalization)
  Sender: FDA-Public Use
  Company Number: None

PATIENT
  Sex: Male
  Weight: 103 kg

DRUGS (3)
  1. OXALIPLATIN [Suspect]
     Dosage: 174 DAY1 AND 15 IV DRIP
     Route: 041
  2. SORAFENIB 200 MG/ TABLET BAYER PHARMACEUTICAL [Suspect]
     Dosage: 200 MG BID PO
     Route: 048
  3. FENTANYL [Concomitant]

REACTIONS (1)
  - DYSPNOEA [None]
